FAERS Safety Report 8858827 (Version 2)
Quarter: 2012Q4

REPORT INFORMATION
  Report Type: 
  Country: FR (occurrence: FR)
  Receive Date: 20121024
  Receipt Date: 20121108
  Transmission Date: 20130627
  Serious: Yes (Other)
  Sender: FDA-Public Use
  Company Number: FR-JNJFOC-20121010256

PATIENT
  Sex: Female

DRUGS (1)
  1. IXPRIM [Suspect]
     Indication: PRODUCT USED FOR UNKNOWN INDICATION
     Route: 048
     Dates: start: 201107, end: 201110

REACTIONS (5)
  - Myalgia [Unknown]
  - Abdominal pain [Unknown]
  - Urticaria [Unknown]
  - Renal pain [Unknown]
  - Headache [Unknown]
